FAERS Safety Report 8919977 (Version 1)
Quarter: 2012Q4

REPORT INFORMATION
  Report Type: 
  Country: FI (occurrence: FI)
  Receive Date: 20121121
  Receipt Date: 20121121
  Transmission Date: 20130627
  Serious: Yes (Other)
  Sender: FDA-Public Use
  Company Number: FI-MYLANLABS-2012S1023450

PATIENT
  Age: 63 Year
  Sex: Female

DRUGS (1)
  1. BUDESONIDE [Suspect]
     Indication: ASTHMA
     Route: 055

REACTIONS (2)
  - Dermatitis allergic [Recovered/Resolved]
  - Hypersensitivity [Recovered/Resolved]
